FAERS Safety Report 23485763 (Version 1)
Quarter: 2024Q1

REPORT INFORMATION
  Report Type: Spontaneous
  Country: US (occurrence: US)
  Receive Date: 20240206
  Receipt Date: 20240206
  Transmission Date: 20240409
  Serious: Yes (Hospitalization)
  Sender: FDA-Public Use
  Company Number: US-DRL-USA-LIT/USA/24/0001604

PATIENT
  Age: 15 Year
  Sex: Female

DRUGS (3)
  1. CLONIDINE [Suspect]
     Active Substance: CLONIDINE
     Indication: Bipolar disorder
  2. MIRTAZAPINE [Suspect]
     Active Substance: MIRTAZAPINE
     Indication: Bipolar disorder
  3. ARIPIPRAZOLE [Suspect]
     Active Substance: ARIPIPRAZOLE
     Indication: Bipolar disorder
     Dosage: TITRATED TO 10MG
     Route: 048

REACTIONS (1)
  - Treatment noncompliance [Unknown]
